FAERS Safety Report 4609449-5 (Version None)
Quarter: 2005Q1

REPORT INFORMATION
  Report Type: 
  Country: None (occurrence: None)
  Receive Date: 20050314
  Receipt Date: 20050228
  Transmission Date: 20050727
  Serious: Yes (Hospitalization)
  Sender: FDA-Public Use
  Company Number: 2005SE01343

PATIENT
  Age: 74 Year
  Sex: Male

DRUGS (1)
  1. CASODEX [Suspect]
     Indication: PROSTATE CANCER
     Dosage: 150 MG DAILY PO
     Route: 048
     Dates: start: 20040818, end: 20050206

REACTIONS (1)
  - LIVER DISORDER [None]
